FAERS Safety Report 9813924 (Version 2)
Quarter: 2014Q1

REPORT INFORMATION
  Report Type: Spontaneous
  Country: JP (occurrence: JP)
  Receive Date: 20140113
  Receipt Date: 20140207
  Transmission Date: 20141002
  Serious: Yes (Other)
  Sender: FDA-Public Use
  Company Number: PHHY2014JP002766

PATIENT
  Age: 84 Year
  Sex: Female

DRUGS (4)
  1. PACLITAXEL [Suspect]
     Indication: LUNG ADENOCARCINOMA
  2. CARBOPLATIN [Suspect]
     Indication: LUNG ADENOCARCINOMA
     Route: 042
  3. PEMETREXED [Suspect]
     Indication: LUNG ADENOCARCINOMA
  4. BEVACIZUMAB [Suspect]
     Indication: LUNG ADENOCARCINOMA

REACTIONS (6)
  - Oesophagobronchial fistula [Unknown]
  - Oesophageal ulcer [Unknown]
  - Fatigue [Unknown]
  - Pyrexia [Recovering/Resolving]
  - Pneumonia [Recovering/Resolving]
  - Productive cough [Unknown]
